FAERS Safety Report 7192692-1 (Version None)
Quarter: 2010Q4

REPORT INFORMATION
  Report Type: 
  Country: None (occurrence: None)
  Receive Date: 20101222
  Receipt Date: 20101222
  Transmission Date: 20110411
  Serious: No
  Sender: FDA-Public Use
  Company Number: None

PATIENT
  Age: 58 Year
  Sex: Male

DRUGS (1)
  1. LACOSAMIDE [Suspect]
     Indication: CONVULSION
     Dosage: 100 MG BID PO
     Route: 048
     Dates: start: 20101012, end: 20101215

REACTIONS (4)
  - AGITATION [None]
  - CONVULSION [None]
  - DRUG INTOLERANCE [None]
  - INSOMNIA [None]
